FAERS Safety Report 9381776 (Version 1)
Quarter: 2013Q3

REPORT INFORMATION
  Report Type: Spontaneous
  Country: US (occurrence: US)
  Receive Date: 20130703
  Receipt Date: 20130703
  Transmission Date: 20140515
  Serious: Yes (Life-Threatening)
  Sender: FDA-Public Use
  Company Number: US-CELGENEUS-163-21880-13052231

PATIENT
  Age: 76 Year
  Sex: Male

DRUGS (3)
  1. REVLIMID [Suspect]
     Indication: ACUTE MYELOID LEUKAEMIA
     Dosage: 50 MILLIGRAM
     Route: 048
     Dates: start: 201211
  2. REVLIMID [Suspect]
     Dosage: 10 MILLIGRAM
     Route: 048
     Dates: start: 201302
  3. REVLIMID [Suspect]
     Dosage: 50 MILLIGRAM
     Route: 048
     Dates: start: 20130513

REACTIONS (2)
  - Acute myeloid leukaemia [Unknown]
  - Thrombocytopenia [Unknown]
